FAERS Safety Report 4866222-0 (Version None)
Quarter: 2005Q4

REPORT INFORMATION
  Report Type: 
  Country: None (occurrence: None)
  Receive Date: 20051221
  Receipt Date: 20051213
  Transmission Date: 20060501
  Serious: Yes (Hospitalization)
  Sender: FDA-Public Use
  Company Number: 2005BI018127

PATIENT
  Age: 25 Year
  Sex: Female

DRUGS (9)
  1. AVONEX [Suspect]
     Indication: MULTIPLE SCLEROSIS
     Dosage: 30 UG;QW;IM
     Route: 030
     Dates: start: 20020610, end: 20030901
  2. AVONEX [Suspect]
     Indication: MULTIPLE SCLEROSIS
     Dosage: 30 UG;QW;IM
     Route: 030
     Dates: start: 20030907
  3. ARANESP [Concomitant]
  4. FLUOXETINE [Concomitant]
  5. SEPTRA [Concomitant]
  6. AMANTADINE HCL [Concomitant]
  7. KLONOPIN [Concomitant]
  8. BIRTH CONTROL PILLS [Concomitant]
  9. PROVIGIL [Concomitant]

REACTIONS (2)
  - PAPILLARY THYROID CANCER [None]
  - PULMONARY EMBOLISM [None]
